FAERS Safety Report 23360742 (Version 2)
Quarter: 2024Q1

REPORT INFORMATION
  Report Type: Spontaneous
  Country: US (occurrence: US)
  Receive Date: 20240103
  Receipt Date: 20240122
  Transmission Date: 20240409
  Serious: No
  Sender: FDA-Public Use
  Company Number: US-AMGEN-USASP2024000434

PATIENT
  Age: 59 Year
  Sex: Female
  Weight: 54.88 kg

DRUGS (3)
  1. EVENITY [Suspect]
     Active Substance: ROMOSOZUMAB-AQQG
     Indication: Product used for unknown indication
     Dosage: 105 MILLIGRAM, QMO
     Route: 058
     Dates: start: 20231130
  2. EVENITY [Suspect]
     Active Substance: ROMOSOZUMAB-AQQG
     Dosage: 105 MILLIGRAM, QMO
     Route: 058
     Dates: start: 20240102
  3. EVENITY [Suspect]
     Active Substance: ROMOSOZUMAB-AQQG
     Dosage: 105 MILLIGRAM, QMO
     Route: 058
     Dates: start: 20240103

REACTIONS (1)
  - Incorrect dose administered [Unknown]

NARRATIVE: CASE EVENT DATE: 20231130
